FAERS Safety Report 12248770 (Version 1)
Quarter: 2016Q2

REPORT INFORMATION
  Report Type: Spontaneous
  Country: None (occurrence: None)
  Receive Date: 20160407
  Receipt Date: 20160407
  Transmission Date: 20160815
  Serious: Yes (Hospitalization)
  Sender: FDA-Public Use
  Company Number: None

PATIENT
  Age: 71 Year
  Sex: Male

DRUGS (1)
  1. TACROLIMUS CAP 1MG [Suspect]
     Active Substance: TACROLIMUS
     Indication: MANTLE CELL LYMPHOMA
     Dosage: 1 BID ORAL
     Route: 048
     Dates: start: 20160324

REACTIONS (1)
  - Lymphoma [None]

NARRATIVE: CASE EVENT DATE: 20160301
